FAERS Safety Report 6805293-9 (Version None)
Quarter: 2010Q2

REPORT INFORMATION
  Report Type: 
  Country: None (occurrence: None)
  Receive Date: 20100628
  Receipt Date: 20071102
  Transmission Date: 20101027
  Serious: Yes (Other)
  Sender: FDA-Public Use
  Company Number: US-PFIZER INC-2007082693

PATIENT
  Sex: Male
  Weight: 68.181 kg

DRUGS (2)
  1. SU-011,248 [Suspect]
     Indication: RENAL CELL CARCINOMA
     Dosage: FREQUENCY: QD; INTERVAL: EVERYDAY
     Dates: start: 20070701
  2. COUMADIN [Concomitant]

REACTIONS (4)
  - AGEUSIA [None]
  - ALOPECIA [None]
  - DECREASED APPETITE [None]
  - WEIGHT DECREASED [None]
